FAERS Safety Report 5723950-2 (Version None)
Quarter: 2008Q2

REPORT INFORMATION
  Report Type: 
  Country: None (occurrence: None)
  Receive Date: 20080430
  Receipt Date: 20080421
  Transmission Date: 20081010
  Serious: Yes (Hospitalization)
  Sender: FDA-Public Use
  Company Number: US-GILEAD-2007-0013937

PATIENT
  Sex: Female
  Weight: 113.5 kg

DRUGS (16)
  1. LETAIRIS [Suspect]
     Indication: PULMONARY HYPERTENSION
     Route: 048
     Dates: start: 20070901
  2. LASIX [Concomitant]
     Route: 048
  3. PREDNISONE [Concomitant]
     Route: 048
  4. COUMADIN [Concomitant]
     Route: 048
  5. SYNTHROID [Concomitant]
     Route: 048
  6. METOLAZONE [Concomitant]
     Route: 048
  7. CALCIUM [Concomitant]
     Route: 048
  8. CARDIZEM [Concomitant]
     Route: 048
  9. HYCODAN [Concomitant]
     Indication: COUGH
     Route: 048
  10. SPIRONOLACTONE [Concomitant]
     Route: 048
  11. ESCITALOPRAM OXALATE [Concomitant]
     Route: 048
  12. BIMATOPROST [Concomitant]
     Route: 047
  13. DIGOXIN [Concomitant]
     Route: 048
  14. LOSARTAN POTASSIUM [Concomitant]
     Route: 048
  15. COLCHICINE [Concomitant]
     Route: 048
  16. PANTOPRAZOLE SODIUM [Concomitant]
     Route: 048

REACTIONS (2)
  - CARDIAC FAILURE CONGESTIVE [None]
  - RENAL FAILURE [None]
